FAERS Safety Report 7403109-3 (Version None)
Quarter: 2011Q1

REPORT INFORMATION
  Report Type: 
  Country: None (occurrence: None)
  Receive Date: 20110331
  Receipt Date: 20110318
  Transmission Date: 20110831
  Serious: Yes (Hospitalization)
  Sender: FDA-Public Use
  Company Number: 2011-00353

PATIENT
  Age: 34 Year
  Sex: Female
  Weight: 60.3284 kg

DRUGS (4)
  1. HYDROCODONE BITARTRATE + ACETAMINOPHEN [Suspect]
     Indication: PAIN
     Dosage: 5/500MG, PER ORAL
     Route: 048
  2. SERTRALINE HYDROCHLORIDE TABLETS 100 MG (SERTRALINE TABLETS 100 [Suspect]
     Indication: DEPRESSION
     Dosage: 100 MG (100 MG, 1 IN 1 D), PER ORAL
     Route: 048
     Dates: start: 20100809, end: 20101020
  3. SERTRALINE HYDROCHLORIDE TABLETS 100 MG (SERTRALINE TABLETS 100 [Suspect]
     Indication: ANXIETY
     Dosage: 100 MG (100 MG, 1 IN 1 D), PER ORAL
     Route: 048
     Dates: start: 20100809, end: 20101020
  4. ZYRTEC [Suspect]
     Indication: MULTIPLE ALLERGIES
     Dosage: 10 MG ( 1O MG, 1 IN 1 D ) PER ORAL
     Route: 048

REACTIONS (5)
  - IMPAIRED WORK ABILITY [None]
  - MULTIPLE DRUG OVERDOSE [None]
  - SUICIDAL IDEATION [None]
  - SPEECH DISORDER [None]
  - HALLUCINATION [None]
